FAERS Safety Report 5856678-9 (Version None)
Quarter: 2008Q3

REPORT INFORMATION
  Report Type: 
  Country: None (occurrence: None)
  Receive Date: 20080825
  Receipt Date: 20080815
  Transmission Date: 20090109
  Serious: Yes (Other)
  Sender: FDA-Public Use
  Company Number: US-PFIZER INC-2008004467

PATIENT
  Sex: Male
  Weight: 90.7 kg

DRUGS (17)
  1. TIKOSYN [Suspect]
     Indication: ATRIAL FIBRILLATION
     Route: 048
  2. DIGOXIN [Suspect]
  3. ANTIHYPERTENSIVES [Suspect]
     Dates: start: 20080101, end: 20080101
  4. WARFARIN SODIUM [Suspect]
  5. DIURETICS [Suspect]
     Indication: HYPERTENSION
  6. TAMSULOSIN HCL [Concomitant]
  7. NORVASC [Concomitant]
  8. PRILOSEC [Concomitant]
  9. FISH OIL [Concomitant]
  10. FLOVENT [Concomitant]
  11. ASPIRIN [Concomitant]
  12. FUROSEMIDE [Concomitant]
  13. PRAVASTATIN [Concomitant]
  14. COZAAR [Concomitant]
  15. PREDNISONE TAB [Concomitant]
  16. SLOW-MAG [Concomitant]
  17. PLAVIX [Concomitant]

REACTIONS (10)
  - ANOREXIA [None]
  - BLOOD PRESSURE INADEQUATELY CONTROLLED [None]
  - BRONCHITIS [None]
  - CARDIOVERSION [None]
  - COLONOSCOPY [None]
  - HAEMORRHAGE [None]
  - PHARYNGITIS [None]
  - PRURITUS [None]
  - RASH [None]
  - SLEEP APNOEA SYNDROME [None]
